FAERS Safety Report 18706727 (Version 1)
Quarter: 2021Q1

REPORT INFORMATION
  Report Type: Spontaneous
  Country: US (occurrence: US)
  Receive Date: 20210105
  Receipt Date: 20210105
  Transmission Date: 20210419
  Serious: Yes (Hospitalization)
  Sender: FDA-Public Use
  Company Number: None

PATIENT
  Age: 77 Year
  Sex: Male
  Weight: 102.6 kg

DRUGS (1)
  1. BAMLANIVIMAB. [Suspect]
     Active Substance: BAMLANIVIMAB
     Indication: COVID-19
     Dosage: ?          OTHER FREQUENCY:ONCE;?
     Route: 042

REACTIONS (6)
  - Chest pain [None]
  - Nausea [None]
  - Dyspnoea exertional [None]
  - Blood pressure increased [None]
  - Pain [None]
  - Headache [None]

NARRATIVE: CASE EVENT DATE: 20201226
